FAERS Safety Report 7810041-X (Version None)
Quarter: 2011Q4

REPORT INFORMATION
  Report Type: 
  Country: None (occurrence: None)
  Receive Date: 20111012
  Receipt Date: 20110805
  Transmission Date: 20120403
  Serious: No
  Sender: FDA-Public Use
  Company Number: US-GLAXOSMITHKLINE-A0940289A

PATIENT

DRUGS (1)
  1. JALYN [Suspect]
     Route: 065

REACTIONS (1)
  - HEADACHE [None]
